FAERS Safety Report 6745799-4 (Version None)
Quarter: 2010Q2

REPORT INFORMATION
  Report Type: 
  Country: None (occurrence: None)
  Receive Date: 20100528
  Receipt Date: 20100518
  Transmission Date: 20101027
  Serious: Yes (Other)
  Sender: FDA-Public Use
  Company Number: TH-NOVOPROD-276195

PATIENT
  Age: 5 Year
  Sex: Male

DRUGS (4)
  1. NOVOSEVEN [Suspect]
     Indication: POST PROCEDURAL HAEMORRHAGE
     Dosage: DIVIDED INTO 10 DOSES
  2. NOVOSEVEN [Suspect]
     Dosage: UNK
  3. PREDNISOLONE [Concomitant]
  4. TRANSAMINE [Concomitant]

REACTIONS (2)
  - CAROTID ARTERY OCCLUSION [None]
  - CEREBRAL INFARCTION [None]
